FAERS Safety Report 9102815 (Version 4)
Quarter: 2013Q1

REPORT INFORMATION
  Report Type: Report from Study
  Country: US (occurrence: US)
  Receive Date: 20130218
  Receipt Date: 20130326
  Transmission Date: 20140127
  Serious: Yes (Hospitalization)
  Sender: FDA-Public Use
  Company Number: US-ROCHE-1191435

PATIENT
  Age: 51 Year
  Sex: Male
  Weight: 92 kg

DRUGS (3)
  1. PEG-INTERFERON ALFA 2A [Suspect]
     Indication: CHRONIC HEPATITIS C
     Dosage: DATE OF MOST RECENT DOSE PRIOR TO SAE 1/28/2013
     Route: 065
     Dates: start: 20120903
  2. RIBAVIRIN [Suspect]
     Indication: CHRONIC HEPATITIS C
     Dosage: DATE OF MOST RECENT DOSE PRIOR TO SAE 1/28/2013
     Route: 065
     Dates: start: 20120903
  3. TELAPREVIR [Suspect]
     Indication: CHRONIC HEPATITIS C
     Dosage: DATE OF MOST RECENT DOSE PRIOR TO SAE 11/27/2012
     Route: 065
     Dates: start: 20120903

REACTIONS (1)
  - Muscle spasms [Recovered/Resolved]
